FAERS Safety Report 5824400-8 (Version None)
Quarter: 2008Q3

REPORT INFORMATION
  Report Type: 
  Country: None (occurrence: None)
  Receive Date: 20080728
  Receipt Date: 20080722
  Transmission Date: 20090109
  Serious: Yes (Hospitalization)
  Sender: FDA-Public Use
  Company Number: A0738899A

PATIENT
  Sex: Female

DRUGS (7)
  1. TREXIMET [Suspect]
     Route: 048
  2. AVELOX [Concomitant]
  3. LORATADINE [Concomitant]
  4. MUCINEX DM [Concomitant]
  5. ALEVE [Concomitant]
  6. EXCEDRIN (MIGRAINE) [Concomitant]
  7. TYLENOL [Concomitant]

REACTIONS (1)
  - DELIRIUM [None]
